FAERS Safety Report 8951550 (Version 1)
Quarter: 2012Q4

REPORT INFORMATION
  Report Type: 
  Country: US (occurrence: US)
  Receive Date: 20121204
  Receipt Date: 20121204
  Transmission Date: 20130627
  Serious: Yes (Death)
  Sender: FDA-Public Use
  Company Number: US-B.I. PHARMACEUTICALS,INC./RIDGEFIELD-2012-BI-01677BP

PATIENT

DRUGS (2)
  1. PRADAXA [Suspect]
     Route: 048
  2. TISSUE PLASMINOGEN ACTIVATOR, RECOMBINANT [Suspect]

REACTIONS (2)
  - Haemorrhage intracranial [Fatal]
  - Drug interaction [Unknown]
